FAERS Safety Report 11074138 (Version 3)
Quarter: 2015Q3

REPORT INFORMATION
  Report Type: Spontaneous
  Country: JP (occurrence: JP)
  Receive Date: 20150429
  Receipt Date: 20150703
  Transmission Date: 20151125
  Serious: Yes (Death, Hospitalization, Other)
  Sender: FDA-Public Use
  Company Number: JP-ROCHE-1568313

PATIENT
  Age: 68 Year
  Sex: Male
  Weight: 46 kg

DRUGS (4)
  1. AVASTIN [Suspect]
     Active Substance: BEVACIZUMAB
     Indication: NON-SMALL CELL LUNG CANCER RECURRENT
     Route: 041
     Dates: start: 20150312, end: 20150312
  2. CISPLATIN. [Concomitant]
     Active Substance: CISPLATIN
     Indication: NON-SMALL CELL LUNG CANCER RECURRENT
     Route: 041
     Dates: start: 20150312
  3. DOCETAXEL. [Concomitant]
     Active Substance: DOCETAXEL
     Indication: NON-SMALL CELL LUNG CANCER RECURRENT
     Route: 041
     Dates: start: 20150312
  4. OXYCODONE [Concomitant]
     Active Substance: OXYCODONE
     Indication: TUMOUR PAIN
     Dosage: DOSAGE IS UNCERTAIN.
     Route: 065

REACTIONS (10)
  - Constipation [Unknown]
  - Small intestinal perforation [Fatal]
  - Malnutrition [Unknown]
  - Wound dehiscence [Recovering/Resolving]
  - Anastomotic leak [Fatal]
  - Protein-losing gastroenteropathy [Unknown]
  - Impaired healing [Recovering/Resolving]
  - Ileus [Fatal]
  - Peritonitis [Fatal]
  - Pneumothorax [Recovered/Resolved]

NARRATIVE: CASE EVENT DATE: 20150325
